FAERS Safety Report 20163839 (Version 1)
Quarter: 2021Q4

REPORT INFORMATION
  Report Type: Spontaneous
  Country: IT (occurrence: IT)
  Receive Date: 20211209
  Receipt Date: 20211209
  Transmission Date: 20220304
  Serious: Yes (Other)
  Sender: FDA-Public Use
  Company Number: IT-009507513-2112ITA001058

PATIENT
  Age: 63 Year
  Sex: Male

DRUGS (1)
  1. ELBASVIR\GRAZOPREVIR [Suspect]
     Active Substance: ELBASVIR\GRAZOPREVIR
     Indication: Chronic hepatitis C
     Dosage: UNK
     Route: 048
     Dates: start: 202001

REACTIONS (4)
  - Pathogen resistance [Unknown]
  - Hepatitis C [Recovering/Resolving]
  - Treatment failure [Unknown]
  - Transaminases increased [Unknown]

NARRATIVE: CASE EVENT DATE: 20200101
